FAERS Safety Report 11388259 (Version 1)
Quarter: 2015Q3

REPORT INFORMATION
  Report Type: Spontaneous
  Country: US (occurrence: US)
  Receive Date: 20150817
  Receipt Date: 20150817
  Transmission Date: 20151125
  Serious: No
  Sender: FDA-Public Use
  Company Number: US-BAYER-2015-395135

PATIENT
  Sex: Female

DRUGS (2)
  1. AVELOX [Suspect]
     Active Substance: MOXIFLOXACIN HYDROCHLORIDE
     Indication: BRONCHITIS
     Dosage: 400 MG, UNK
     Route: 048
     Dates: start: 20070613
  2. LEVAQUIN [Suspect]
     Active Substance: LEVOFLOXACIN
     Indication: BRONCHITIS
     Dosage: 750 MG, UNK
     Route: 048
     Dates: start: 20080428

REACTIONS (9)
  - Emotional distress [None]
  - Anxiety [None]
  - Injury [None]
  - Hypoaesthesia [None]
  - Pain [None]
  - Discomfort [None]
  - Neuropathy peripheral [None]
  - Anhedonia [None]
  - Activities of daily living impaired [None]
